FAERS Safety Report 19310270 (Version 1)
Quarter: 2021Q2

REPORT INFORMATION
  Report Type: Spontaneous
  Country: FR (occurrence: FR)
  Receive Date: 20210526
  Receipt Date: 20210526
  Transmission Date: 20210717
  Serious: Yes (Hospitalization)
  Sender: FDA-Public Use
  Company Number: FR-PFIZER INC-2021539379

PATIENT
  Age: 68 Year
  Sex: Female

DRUGS (13)
  1. JANUMET [Concomitant]
     Active Substance: METFORMIN HYDROCHLORIDE\SITAGLIPTIN PHOSPHATE
     Dosage: 1000/50 MG, 2X/DAY
  2. HUMALOG [Concomitant]
     Active Substance: INSULIN LISPRO
     Dosage: 4 IU (TO 6 IU IF BLOOD SUGAR GREATER THAN 2.5G)
  3. IRBESARTAN/HYDROCHLOROTHIAZIDE [Concomitant]
     Active Substance: HYDROCHLOROTHIAZIDE\IRBESARTAN
     Dosage: 25 MG/300 MG, 1X/DAY
  4. LERCANIDIPINE [Concomitant]
     Active Substance: LERCANIDIPINE
     Dosage: 20 MG, DAILY
  5. AROMASINE [Suspect]
     Active Substance: EXEMESTANE
     Indication: BREAST CANCER
     Dosage: UNK
     Route: 048
     Dates: start: 202103
  6. KARDEGIC [Concomitant]
     Active Substance: ASPIRIN DL-LYSINE
     Dosage: 75 MG
  7. ABASAGLAR [Concomitant]
     Active Substance: INSULIN GLARGINE
     Dosage: 26 IU, 1X/DAY (IN THE EVENING)
  8. LANSOPRAZOLE. [Concomitant]
     Active Substance: LANSOPRAZOLE
     Dosage: 30 MG, 1X/DAY
  9. UVEDOSE [Concomitant]
     Active Substance: CHOLECALCIFEROL
     Dosage: 1 DF (1 VIAL / 15 DAYS)
  10. TAHOR [Concomitant]
     Active Substance: ATORVASTATIN CALCIUM
     Dosage: 20 MG, 1X/DAY
  11. AMAREL [Concomitant]
     Active Substance: GLIMEPIRIDE
     Dosage: 4 MG, 1X/DAY
  12. COMIRNATY [Suspect]
     Active Substance: TOZINAMERAN
     Indication: COVID-19 IMMUNISATION
     Dosage: 2ND DOSE, SINGLE
     Route: 030
     Dates: start: 20210410, end: 20210410
  13. GLUCOPHAGE [Concomitant]
     Active Substance: METFORMIN HYDROCHLORIDE
     Dosage: 1000 MG, 1X/DAY

REACTIONS (1)
  - Cerebrovascular accident [Recovering/Resolving]

NARRATIVE: CASE EVENT DATE: 20210412
